FAERS Safety Report 4644788-3 (Version None)
Quarter: 2005Q2

REPORT INFORMATION
  Report Type: 
  Country: None (occurrence: None)
  Receive Date: 20050426
  Receipt Date: 20050414
  Transmission Date: 20051028
  Serious: Yes (Hospitalization)
  Sender: FDA-Public Use
  Company Number: IN-BOEHRINGER INGELHEIM PHARMACEUTICALS, INC.-2005-DE-01441GD

PATIENT
  Age: 42 Year
  Sex: Male

DRUGS (9)
  1. NEVIRAPINE [Suspect]
     Indication: HIV INFECTION
  2. LAMIVUDINE [Suspect]
     Indication: HIV INFECTION
  3. STAVUDINE [Suspect]
     Indication: HIV INFECTION
  4. ISONIAZID [Concomitant]
     Indication: TUBERCULOSIS
  5. RIFAMPICIN [Concomitant]
     Indication: TUBERCULOSIS
  6. PYRAZINAMIDE [Concomitant]
     Indication: TUBERCULOSIS
  7. ETHAMBUTOL HCL [Concomitant]
     Indication: TUBERCULOSIS
  8. TRIMETHOPRIM-SULFAMETHOXAZOLE [Concomitant]
     Indication: INFECTION PROPHYLAXIS
     Dosage: 160 MG TRIMETHOPRIM, 800 MG SULFAMETHOXAZOLE
  9. TRIMETHOPRIM-SULFAMETHOXAZOLE [Concomitant]
     Dosage: 320 MG TRIMETHOPRIM, 1600 MG SULFAMETHOXAZOLE

REACTIONS (3)
  - IMMUNE RECONSTITUTION SYNDROME [None]
  - LUNG INFILTRATION [None]
  - LYMPHADENOPATHY MEDIASTINAL [None]
